FAERS Safety Report 21330209 (Version 1)
Quarter: 2022Q3

REPORT INFORMATION
  Report Type: Spontaneous
  Country: US (occurrence: US)
  Receive Date: 20220913
  Receipt Date: 20220913
  Transmission Date: 20221027
  Serious: No
  Sender: FDA-Public Use
  Company Number: US-PFIZER INC-202201152122

PATIENT
  Age: 60 Year
  Sex: Female
  Weight: 78.47 kg

DRUGS (1)
  1. PREMARIN [Suspect]
     Active Substance: ESTROGENS, CONJUGATED
     Indication: Hormone replacement therapy
     Dosage: UNK, 1X/DAY (ONCE A DAY BY MOUTH)
     Route: 048

REACTIONS (4)
  - Cystitis [Recovered/Resolved]
  - Abdominal pain upper [Unknown]
  - Vulvovaginal dryness [Unknown]
  - Incontinence [Unknown]
